FAERS Safety Report 11087112 (Version 1)
Quarter: 2015Q2

REPORT INFORMATION
  Report Type: Spontaneous
  Country: US (occurrence: None)
  Receive Date: 20150501
  Receipt Date: 20150501
  Transmission Date: 20150821
  Serious: No
  Sender: FDA-Public Use
  Company Number: None

PATIENT
  Age: 61 Year
  Sex: Female
  Weight: 108.86 kg

DRUGS (35)
  1. VITAMIN D2 [Suspect]
     Active Substance: ERGOCALCIFEROL
     Indication: OSTEOPENIA
     Route: 048
  2. ROSUVASTATIN (CRESTOR) [Concomitant]
  3. CPAP [Concomitant]
     Active Substance: DEVICE
  4. AMB HOME OXYGEN [Concomitant]
  5. PORASIUM [Concomitant]
  6. NIFEDIPINE (PROCARDIA) [Concomitant]
  7. MULTIVITAMIN (HEXAVITAMIN) [Concomitant]
  8. CHOLECALCIFEROL (VITAMIN D3) [Concomitant]
  9. XOPENEX [Concomitant]
     Active Substance: LEVALBUTEROL HYDROCHLORIDE
  10. VITAMIN D2 [Concomitant]
     Active Substance: ERGOCALCIFEROL
  11. TRAMADOL (ULTRAM) [Concomitant]
  12. EPINEPHRINE (EPIPEN) [Concomitant]
  13. NITROGLYCERIN SPRAY (NITROLINGUAL) [Concomitant]
  14. NICARDIPINE (CARDENE) [Concomitant]
  15. PLAVIX [Concomitant]
     Active Substance: CLOPIDOGREL BISULFATE
  16. PYRIDOXINE (B-6) [Concomitant]
  17. FLOVENT HFA [Concomitant]
     Active Substance: FLUTICASONE PROPIONATE
  18. LEVALBUTEROL (XOPENEX HFA) [Concomitant]
  19. MAGNESIUM OXIDE (MAG-OX) [Concomitant]
  20. MOMETASONE (ELOCON) [Concomitant]
  21. ARGININE HC1 [Concomitant]
  22. L-ARGININE [Concomitant]
     Active Substance: ARGININE
  23. ISOSORBIDE MONONITRATE (IMDUR) [Concomitant]
  24. VERAPAMIL (VERELAN) [Concomitant]
  25. ERGOCALCIFEROL. [Concomitant]
     Active Substance: ERGOCALCIFEROL
  26. MAGNESIUM(NO SOY), [Concomitant]
  27. RAMIPRIL (ALTACE) [Concomitant]
  28. VALACYCLOVIR (VALTREX) [Concomitant]
  29. PEG 400-PROPYLENE GLYCOL (SYSTANE) [Concomitant]
  30. VITAMIN D2(NO SOY). [Concomitant]
  31. VITAMIN D2 [Concomitant]
     Active Substance: ERGOCALCIFEROL
  32. DIPHENOXYLATE-ATROPINE (LOMOTIL) [Concomitant]
  33. ONDANSETRON (ZOFRAN-ODT) [Concomitant]
  34. HYDRALAZINE (APRESOLINE) [Concomitant]
  35. OMEPRAZOLE (PRILOSEC) [Concomitant]

REACTIONS (5)
  - Diarrhoea [None]
  - Pruritus [None]
  - Nausea [None]
  - Drug hypersensitivity [None]
  - Pharyngeal oedema [None]

NARRATIVE: CASE EVENT DATE: 20150423
